FAERS Safety Report 15476885 (Version 2)
Quarter: 2018Q4

REPORT INFORMATION
  Report Type: Spontaneous
  Country: US (occurrence: US)
  Receive Date: 20181009
  Receipt Date: 20181016
  Transmission Date: 20190205
  Serious: No
  Sender: FDA-Public Use
  Company Number: US-AMGEN-USASP2018137831

PATIENT
  Age: 76 Year
  Sex: Female

DRUGS (4)
  1. PROLIA [Suspect]
     Active Substance: DENOSUMAB
     Indication: OSTEOPOROSIS
     Dosage: UNK
     Route: 065
     Dates: start: 201504
  2. CITRACAL PLUS D [Concomitant]
  3. CALCIUM [Concomitant]
     Active Substance: CALCIUM
  4. ADVIL [Concomitant]
     Active Substance: IBUPROFEN

REACTIONS (10)
  - Groin pain [Unknown]
  - Gait disturbance [Unknown]
  - Pain in extremity [Unknown]
  - Blood pressure increased [Unknown]
  - Cough [Recovered/Resolved]
  - Oropharyngeal pain [Recovered/Resolved]
  - Arthralgia [Unknown]
  - Muscle spasms [Recovered/Resolved]
  - Arthritis [Unknown]
  - Back pain [Unknown]

NARRATIVE: CASE EVENT DATE: 201809
